FAERS Safety Report 8380923-1 (Version None)
Quarter: 2012Q2

REPORT INFORMATION
  Report Type: 
  Country: None (occurrence: None)
  Receive Date: 20120523
  Receipt Date: 20120511
  Transmission Date: 20120825
  Serious: Yes (Hospitalization, Other)
  Sender: FDA-Public Use
  Company Number: US-PFIZER INC-2007106985

PATIENT
  Sex: Female
  Weight: 83.46 kg

DRUGS (1)
  1. SUTENT [Suspect]
     Indication: BLADDER TRANSITIONAL CELL CARCINOMA
     Dosage: 50 MG, 1X/DAY
     Route: 048
     Dates: start: 20071004, end: 20071109

REACTIONS (3)
  - SMALL INTESTINAL OBSTRUCTION [None]
  - ILEUS [None]
  - INTESTINAL PERFORATION [None]
